FAERS Safety Report 5973663-7 (Version None)
Quarter: 2008Q4

REPORT INFORMATION
  Report Type: 
  Country: None (occurrence: None)
  Receive Date: 20081201
  Receipt Date: 20081119
  Transmission Date: 20090506
  Serious: Yes (Other)
  Sender: FDA-Public Use
  Company Number: BR-ELI_LILLY_AND_COMPANY-BR200811004599

PATIENT
  Age: 76 Year
  Sex: Female
  Weight: 63 kg

DRUGS (6)
  1. EVISTA [Suspect]
     Indication: OSTEOPOROSIS
     Dosage: 60 MG, DAILY (1/D)
     Route: 048
     Dates: start: 19990101
  2. ZOCOR [Concomitant]
     Indication: INFARCTION
     Dosage: 10 MG, DAILY (1/D)
     Route: 048
  3. MONOCORDIL [Concomitant]
     Indication: INFARCTION
     Dosage: 20 MG, 2/D
     Route: 048
  4. SELOKEEN [Concomitant]
     Indication: INFARCTION
     Dosage: 100 MG, DAILY (1/D)
     Route: 048
  5. AAS [Concomitant]
     Indication: INFARCTION
     Dosage: UNK, DAILY (1/D)
     Route: 048
  6. SYNTHROID [Concomitant]
     Indication: THYROID DISORDER
     Dosage: 25 MG, DAILY (1/D)

REACTIONS (3)
  - FALL [None]
  - OVARIAN OPERATION [None]
  - SURGERY [None]
